FAERS Safety Report 9887640 (Version 1)
Quarter: 2014Q1

REPORT INFORMATION
  Report Type: Spontaneous
  Country: FI (occurrence: FI)
  Receive Date: 20140211
  Receipt Date: 20140211
  Transmission Date: 20141002
  Serious: Yes (Hospitalization, Other)
  Sender: FDA-Public Use
  Company Number: FI-ROCHE-1343757

PATIENT
  Age: 35 Year
  Sex: Male

DRUGS (12)
  1. CELLCEPT [Suspect]
     Indication: IMMUNOSUPPRESSION
     Dosage: ON GRAM TWICE DAILY
     Route: 065
     Dates: start: 200905
  2. CELLCEPT [Suspect]
     Dosage: 1 TABLET TWICE DAILY
     Route: 065
  3. MABTHERA [Suspect]
     Indication: DIFFUSE LARGE B-CELL LYMPHOMA
     Route: 042
  4. MEDROL [Suspect]
     Indication: IMMUNOSUPPRESSION
     Route: 065
  5. ASACOL [Suspect]
     Indication: IMMUNOSUPPRESSION
     Route: 065
  6. VINCRISTINE [Concomitant]
  7. PREDNISOLONE [Concomitant]
  8. CYCLOPHOSPHAMIDE [Concomitant]
  9. DOXORUBICIN [Concomitant]
  10. ETOPOSIDE [Concomitant]
  11. NEULASTA [Concomitant]
  12. TACROLIMUS [Concomitant]

REACTIONS (11)
  - Small intestinal obstruction [Unknown]
  - C-reactive protein increased [Unknown]
  - Lymphadenitis bacterial [Unknown]
  - Diffuse large B-cell lymphoma [Unknown]
  - Infection [Unknown]
  - Viral load increased [Unknown]
  - Immunoglobulins decreased [Unknown]
  - Influenza [Unknown]
  - Gastroenteritis [Unknown]
  - Moraxella infection [Unknown]
  - Lymphadenopathy mediastinal [Unknown]
